FAERS Safety Report 7038056-2 (Version None)
Quarter: 2010Q4

REPORT INFORMATION
  Report Type: 
  Country: None (occurrence: None)
  Receive Date: 20101011
  Receipt Date: 20100930
  Transmission Date: 20110411
  Serious: Yes (Hospitalization, Other)
  Sender: FDA-Public Use
  Company Number: JP-PFIZER INC-2010124508

PATIENT
  Age: 87 Year
  Sex: Female
  Weight: 48 kg

DRUGS (4)
  1. CELECOX [Suspect]
     Indication: RHEUMATOID ARTHRITIS
     Dosage: 100 MG, 2X/DAY
     Route: 048
     Dates: end: 20100913
  2. RHEUMATREX [Suspect]
     Indication: RHEUMATOID ARTHRITIS
     Dosage: 4 MG, WEEKLY
     Route: 048
     Dates: end: 20100907
  3. PREDONINE [Suspect]
     Indication: RHEUMATOID ARTHRITIS
     Dosage: 5 MG, 1X/DAY
     Route: 048
     Dates: end: 20100916
  4. TAKEPRON [Concomitant]
     Dosage: UNK

REACTIONS (4)
  - CARDIAC FAILURE [None]
  - GASTRIC PERFORATION [None]
  - RENAL IMPAIRMENT [None]
  - WHITE BLOOD CELL COUNT DECREASED [None]
